FAERS Safety Report 4735975-4 (Version None)
Quarter: 2005Q3

REPORT INFORMATION
  Report Type: 
  Country: None (occurrence: None)
  Receive Date: 20050805
  Receipt Date: 20041115
  Transmission Date: 20060218
  Serious: Yes (Disabling)
  Sender: FDA-Public Use
  Company Number: FR-MERCK-0411USA02674

PATIENT
  Age: 54 Year
  Sex: Female

DRUGS (8)
  1. ZOCOR [Suspect]
     Indication: HYPERCHOLESTEROLAEMIA
     Route: 048
     Dates: start: 19920101, end: 19960101
  2. ZOCOR [Suspect]
     Route: 048
     Dates: start: 20031128, end: 20040101
  3. QUESTRAN [Concomitant]
     Route: 065
     Dates: start: 19950101
  4. ELISOR [Suspect]
     Indication: HYPERCHOLESTEROLAEMIA
     Route: 048
     Dates: start: 20020701
  5. LIPANTHYL [Concomitant]
     Route: 065
  6. TAHOR [Suspect]
     Indication: HYPERCHOLESTEROLAEMIA
     Route: 048
     Dates: start: 19970101, end: 20010101
  7. CERIVASTATIN SODIUM [Suspect]
     Indication: HYPERCHOLESTEROLAEMIA
     Route: 048
     Dates: start: 20010101
  8. PRAVASTATIN [Concomitant]
     Route: 065
     Dates: start: 19920101, end: 19960101

REACTIONS (12)
  - ABDOMINAL PAIN [None]
  - DIARRHOEA [None]
  - DIFFICULTY IN WALKING [None]
  - DYSGRAPHIA [None]
  - FIBROMYALGIA [None]
  - HYPOAESTHESIA [None]
  - INSOMNIA [None]
  - MULTIPLE SCLEROSIS [None]
  - MYALGIA [None]
  - MYELITIS [None]
  - PARAESTHESIA [None]
  - PARESIS [None]
